FAERS Safety Report 10130579 (Version 1)
Quarter: 2014Q2

REPORT INFORMATION
  Report Type: Spontaneous
  Country: FR (occurrence: FR)
  Receive Date: 20140428
  Receipt Date: 20140428
  Transmission Date: 20141212
  Serious: Yes (Hospitalization)
  Sender: FDA-Public Use
  Company Number: FR-009507513-1404FRA012250

PATIENT
  Sex: Male

DRUGS (7)
  1. ISENTRESS [Suspect]
     Indication: HIV INFECTION
     Dosage: UNK
     Dates: start: 20130422
  2. SUSTIVA [Suspect]
     Indication: PRODUCT USED FOR UNKNOWN INDICATION
     Dosage: UNK
     Route: 048
     Dates: start: 19980731, end: 20130422
  3. ZERIT [Suspect]
     Indication: PRODUCT USED FOR UNKNOWN INDICATION
     Dosage: UNK
     Route: 048
     Dates: start: 19980731, end: 20000522
  4. ZIAGEN [Suspect]
     Indication: PRODUCT USED FOR UNKNOWN INDICATION
     Dosage: UNK
     Dates: start: 19980731, end: 2006
  5. EPIVIR [Suspect]
     Indication: PRODUCT USED FOR UNKNOWN INDICATION
     Dosage: UNK
     Dates: start: 20000522, end: 2006
  6. KIVEXA [Suspect]
     Indication: PRODUCT USED FOR UNKNOWN INDICATION
     Dosage: UNK
     Dates: start: 2006, end: 20130422
  7. INTELENCE [Suspect]
     Indication: PRODUCT USED FOR UNKNOWN INDICATION
     Dosage: UNK
     Dates: start: 20130422

REACTIONS (1)
  - Lipodystrophy acquired [Not Recovered/Not Resolved]
